FAERS Safety Report 17150921 (Version 2)
Quarter: 2021Q1

REPORT INFORMATION
  Report Type: Report from Study
  Country: CA (occurrence: CA)
  Receive Date: 20191213
  Receipt Date: 20210208
  Transmission Date: 20210419
  Serious: Yes (Other)
  Sender: FDA-Public Use
  Company Number: CA-JNJFOC-20191010515

PATIENT
  Age: 22 Year
  Sex: Female
  Weight: 54.5 kg

DRUGS (3)
  1. PREDNISONE. [Concomitant]
     Active Substance: PREDNISONE
     Indication: PRODUCT USED FOR UNKNOWN INDICATION
     Route: 065
     Dates: end: 2019
  2. REMICADE [Suspect]
     Active Substance: INFLIXIMAB
     Route: 042
  3. REMICADE [Suspect]
     Active Substance: INFLIXIMAB
     Indication: CROHN^S DISEASE
     Route: 042
     Dates: start: 20190607

REACTIONS (18)
  - Dyspnoea [Unknown]
  - Anaemia [Not Recovered/Not Resolved]
  - Pruritus [Recovered/Resolved]
  - Hyperhidrosis [Unknown]
  - Crohn^s disease [Not Recovered/Not Resolved]
  - Pallor [Unknown]
  - Injection site pruritus [Recovered/Resolved]
  - Paraesthesia [Recovered/Resolved]
  - Therapeutic product effect incomplete [Unknown]
  - Off label use [Unknown]
  - Erythema [Recovered/Resolved]
  - Fatigue [Unknown]
  - Infusion related reaction [Recovered/Resolved]
  - Throat irritation [Recovered/Resolved]
  - Incorrect drug administration rate [Unknown]
  - Syncope [Unknown]
  - Muscle twitching [Unknown]
  - Product use issue [Unknown]

NARRATIVE: CASE EVENT DATE: 2019
